FAERS Safety Report 6987526-1 (Version None)
Quarter: 2010Q3

REPORT INFORMATION
  Report Type: 
  Country: None (occurrence: None)
  Receive Date: 20100916
  Receipt Date: 20100809
  Transmission Date: 20110219
  Serious: No
  Sender: FDA-Public Use
  Company Number: US-PFIZER INC-2010100383

PATIENT
  Sex: Male

DRUGS (2)
  1. AZITHROMYCIN [Suspect]
     Indication: RESPIRATORY TRACT INFECTION
     Dosage: UNK
     Dates: start: 20100809
  2. AZITHROMYCIN [Suspect]
     Indication: PNEUMONIA

REACTIONS (2)
  - DIARRHOEA [None]
  - DYSGEUSIA [None]
